FAERS Safety Report 5383783-6 (Version None)
Quarter: 2007Q3

REPORT INFORMATION
  Report Type: 
  Country: None (occurrence: None)
  Receive Date: 20070706
  Receipt Date: 20070622
  Transmission Date: 20080115
  Serious: Yes (Other)
  Sender: FDA-Public Use
  Company Number: 2007322649

PATIENT
  Age: 37 Year
  Sex: Female
  Weight: 46.2669 kg

DRUGS (7)
  1. VISINE-A [Suspect]
     Indication: EYE ALLERGY
     Dosage: 1 DROP ONCE, OPHTHALMIC
     Route: 047
     Dates: start: 20070515, end: 20070515
  2. VISINE-A [Suspect]
     Indication: EYE PRURITUS
     Dosage: 1 DROP ONCE, OPHTHALMIC
     Route: 047
     Dates: start: 20070515, end: 20070515
  3. PREMPRO [Concomitant]
  4. SYNTHROID [Concomitant]
  5. ATENOLOL [Concomitant]
  6. ALLEGRA [Concomitant]
  7. BONVIVA         (IBANDRONIC ACID) [Concomitant]

REACTIONS (3)
  - BLINDNESS UNILATERAL [None]
  - HEADACHE [None]
  - PAIN [None]
